FAERS Safety Report 21641574 (Version 1)
Quarter: 2022Q4

REPORT INFORMATION
  Report Type: Spontaneous
  Country: US (occurrence: US)
  Receive Date: 20221125
  Receipt Date: 20221125
  Transmission Date: 20230112
  Serious: Yes (Hospitalization, Other)
  Sender: FDA-Public Use
  Company Number: US-BRISTOL-MYERS SQUIBB COMPANY-2022-143150

PATIENT
  Age: 76 Year
  Sex: Male

DRUGS (1)
  1. REVLIMID [Suspect]
     Active Substance: LENALIDOMIDE
     Indication: Follicular lymphoma
     Dosage: 5 MG ORAL CAPSULE QUANTITY 21, TAKE ONE EVERY DAY FOR 21 DAYS  AND OFF FOR 7 DAYS
     Route: 048
     Dates: start: 20220331

REACTIONS (2)
  - Pneumonia [Unknown]
  - Escherichia infection [Unknown]
